FAERS Safety Report 4377190-2 (Version None)
Quarter: 2004Q2

REPORT INFORMATION
  Report Type: 
  Country: None (occurrence: None)
  Receive Date: 20040609
  Receipt Date: 20040218
  Transmission Date: 20050107
  Serious: No
  Sender: FDA-Public Use
  Company Number: 2004199962US

PATIENT
  Age: 69 Year
  Sex: Female

DRUGS (7)
  1. BEXTRA [Suspect]
     Indication: INTERVERTEBRAL DISC PROTRUSION
     Dosage: 20 MG, QD, UNK
     Route: 065
     Dates: start: 20040101
  2. AMBIEN [Concomitant]
  3. PROZAC [Concomitant]
  4. SERZONE [Concomitant]
  5. BENADRYL [Concomitant]
  6. ZYRTEC [Concomitant]
  7. NASACORT [Concomitant]

REACTIONS (1)
  - GINGIVAL BLISTER [None]
